FAERS Safety Report 7315989-0 (Version None)
Quarter: 2011Q1

REPORT INFORMATION
  Report Type: 
  Country: None (occurrence: None)
  Receive Date: 20110225
  Receipt Date: 20110214
  Transmission Date: 20110831
  Serious: Yes (Other)
  Sender: FDA-Public Use
  Company Number: PHHY2011BR13070

PATIENT
  Sex: Male

DRUGS (1)
  1. DIOVAN HCT [Suspect]
     Dosage: 160/ 12.5 MG
     Route: 048

REACTIONS (4)
  - HEADACHE [None]
  - MALAISE [None]
  - CEREBROVASCULAR ACCIDENT [None]
  - BLOOD PRESSURE INADEQUATELY CONTROLLED [None]
